FAERS Safety Report 7053761-X (Version None)
Quarter: 2010Q4

REPORT INFORMATION
  Report Type: 
  Country: None (occurrence: None)
  Receive Date: 20101020
  Receipt Date: 20101013
  Transmission Date: 20110411
  Serious: Yes (Death)
  Sender: FDA-Public Use
  Company Number: A0887482A

PATIENT
  Age: 44 Year
  Sex: Male

DRUGS (1)
  1. ZOFRAN [Suspect]
     Indication: PRODUCT USED FOR UNKNOWN INDICATION
     Route: 042
     Dates: start: 20100701, end: 20101013

REACTIONS (1)
  - DEATH [None]
